FAERS Safety Report 19163666 (Version 2)
Quarter: 2021Q2

REPORT INFORMATION
  Report Type: Report from Study
  Country: TR (occurrence: TR)
  Receive Date: 20210421
  Receipt Date: 20210504
  Transmission Date: 20210717
  Serious: Yes (Death)
  Sender: FDA-Public Use
  Company Number: TR-PFIZER INC-2021415404

PATIENT

DRUGS (21)
  1. CALCIUM FOLINATE [Suspect]
     Active Substance: LEUCOVORIN CALCIUM
     Indication: ACUTE LYMPHOCYTIC LEUKAEMIA
     Dosage: 15 MG/M2, FIRST INTERIM MAINTENANCE DAYS 3?4, 17?18, 31?32, 45?46 (9 WK)
  2. DOXORUBICIN HCL [Suspect]
     Active Substance: DOXORUBICIN HYDROCHLORIDE
     Indication: ACUTE LYMPHOCYTIC LEUKAEMIA
     Dosage: 25 MG/M2/D, FIRST DELAYED INTENSIFICATION PHASE DAYS 1, 8, 15 (8 WK)
     Route: 042
  3. DEXAMETHASONE. [Suspect]
     Active Substance: DEXAMETHASONE
     Dosage: 6 MG/M2/D IN DIVIDED DOSES, MAINTENANCE PHASE DAYS 1?5, 29?33, 57?61 (EVERY 12 WK)
     Route: 048
  4. DEXAMETHASONE. [Suspect]
     Active Substance: DEXAMETHASONE
     Indication: ACUTE LYMPHOCYTIC LEUKAEMIA
     Dosage: 5 MG/M2, 2X/DAY, INDUCTION PHASE AND FIRST DELAYED INTENSIFICATION PHASE
     Route: 048
  5. MERCAPTOPURINE. [Suspect]
     Active Substance: MERCAPTOPURINE
     Dosage: 25 MG/M2/DAY, FIRST INTERIM MAINTENANCE PHASE DAYS 1?56 (9 WK)
     Route: 048
  6. CYTARABINE. [Suspect]
     Active Substance: CYTARABINE
     Dosage: 75 MG/M2/DAY, CONSOLIDATION AND FIRST DELAYED INTENSIFICATION PHASE
     Route: 042
  7. METHOTREXATE SODIUM. [Suspect]
     Active Substance: METHOTREXATE SODIUM
     Dosage: 20 MG/M2/DOSE, (DAYS 8, 15, 22, 29, 36, 43, 50, 57, 64, 71, 78 OF EACH CYCLE) (EVERY 12 WK)
     Route: 048
  8. DAUNORUBICIN HCL [Suspect]
     Active Substance: DAUNORUBICIN HYDROCHLORIDE
     Indication: ACUTE LYMPHOCYTIC LEUKAEMIA
     Dosage: 25 MG/M2, INDUCTION DAYS 1, 8, 15, 22 (4 WK)
     Route: 042
  9. PREDNISONE. [Suspect]
     Active Substance: PREDNISONE
     Dosage: 30 MG/M2, 2X/DAY, INDUCTION PHASE DAYS 1?28 (4 WK)
     Route: 042
  10. METHOTREXATE SODIUM. [Suspect]
     Active Substance: METHOTREXATE SODIUM
     Indication: ACUTE LYMPHOCYTIC LEUKAEMIA
     Dosage: AGE ADJUSTED DOSE
     Route: 037
  11. CYCLOPHOSPHAMIDE. [Suspect]
     Active Substance: CYCLOPHOSPHAMIDE
     Indication: ACUTE LYMPHOCYTIC LEUKAEMIA
     Dosage: 1000 MG/M2/DAY, CONSOLIDATION AND FIRST DELAYED INTENSIFICATION PHASE DAY
     Route: 042
  12. PREDNISONE. [Suspect]
     Active Substance: PREDNISONE
     Indication: ACUTE LYMPHOCYTIC LEUKAEMIA
     Dosage: 30 MG/M2, 2X/DAY, INDUCTION PHASE DAYS 1?28 (4 WK)
     Route: 048
  13. MERCAPTOPURINE. [Suspect]
     Active Substance: MERCAPTOPURINE
     Indication: ACUTE LYMPHOCYTIC LEUKAEMIA
     Dosage: 60 MG/M2/DAY CONSOLIDATION PHASE DAYS 1?14, 29?42 (8 WK)
     Route: 048
  14. CYTARABINE. [Suspect]
     Active Substance: CYTARABINE
     Indication: ACUTE LYMPHOCYTIC LEUKAEMIA
     Dosage: AGE ADJUSTED, INDUCTION PHASE DAY 1 (4 WK)
     Route: 037
  15. METHOTREXATE SODIUM. [Suspect]
     Active Substance: METHOTREXATE SODIUM
     Dosage: 5000 MG/M2/D (HIGH DOSE), DAYS 1, 15, 29, 43 (9 WK)
     Route: 042
  16. VINCRISTINE SULFATE. [Suspect]
     Active Substance: VINCRISTINE SULFATE
     Indication: ACUTE LYMPHOCYTIC LEUKAEMIA
     Dosage: 1.5 MG/M2
     Route: 042
  17. MERCAPTOPURINE. [Suspect]
     Active Substance: MERCAPTOPURINE
     Dosage: 75 MG/M2/DAY, MAINTENANCE PHASE DAYS 1?84 (EVERY 12 WK)
     Route: 048
  18. CYTARABINE. [Suspect]
     Active Substance: CYTARABINE
     Dosage: 75 MG/M2/DAY, CONSOLIDATION AND FIRST DELAYED INTENSIFICATION PHASE
     Route: 058
  19. DEXAMETHASONE. [Suspect]
     Active Substance: DEXAMETHASONE
     Dosage: 5 MG/M2, 2X/DAY INDUCTION PHASE AND FIRST DELAYED INTENSIFICATION PHASE
     Route: 042
  20. THIOGUANINE [Suspect]
     Active Substance: THIOGUANINE
     Indication: ACUTE LYMPHOCYTIC LEUKAEMIA
     Dosage: 60 MG/M2 PER DAY, FIRST DELAYED INTENSIFICATION PHASE DAYS 29?42 (8 WK)
     Route: 048
  21. PEG/L?ASPARAGINASE [Suspect]
     Active Substance: PEGASPARGASE
     Indication: ACUTE LYMPHOCYTIC LEUKAEMIA
     Dosage: 2500 IU/M2, INDUCTION, CONSOLIDATION AND FIRST DELAYED INTENSIFICATION PHASE
     Route: 030

REACTIONS (1)
  - Toxicity to various agents [Fatal]
